FAERS Safety Report 10431412 (Version 1)
Quarter: 2014Q3

REPORT INFORMATION
  Report Type: Spontaneous
  Country: US (occurrence: None)
  Receive Date: 20140903
  Receipt Date: 20140903
  Transmission Date: 20150326
  Serious: Yes (Hospitalization, Other)
  Sender: FDA-Public Use
  Company Number: LH201400221

PATIENT
  Age: 32 Year
  Sex: Female

DRUGS (1)
  1. MAKENA [Suspect]
     Active Substance: HYDROXYPROGESTERONE CAPROATE
     Indication: PREMATURE DELIVERY
     Route: 030
     Dates: start: 20140630, end: 20140714

REACTIONS (5)
  - Cervix disorder [None]
  - Premature rupture of membranes [None]
  - Stillbirth [None]
  - Vaginal haemorrhage [None]
  - Maternal exposure timing unspecified [None]

NARRATIVE: CASE EVENT DATE: 20140717
